FAERS Safety Report 22103477 (Version 1)
Quarter: 2023Q1

REPORT INFORMATION
  Report Type: Report from Study
  Country: US (occurrence: US)
  Receive Date: 20230316
  Receipt Date: 20230316
  Transmission Date: 20230418
  Serious: Yes (Hospitalization, Other)
  Sender: FDA-Public Use
  Company Number: US-ALNYLAM PHARMACEUTICALS, INC.-ALN-2023-001093

PATIENT

DRUGS (2)
  1. GIVLAARI [Suspect]
     Active Substance: GIVOSIRAN SODIUM
     Indication: Product used for unknown indication
     Dosage: 106.83, MONTHLY
     Route: 058
     Dates: start: 20210813
  2. GIVLAARI [Suspect]
     Active Substance: GIVOSIRAN SODIUM
     Dosage: 106.83, MONTHLY
     Route: 058
     Dates: start: 202204

REACTIONS (4)
  - Mental disorder [Unknown]
  - Porphyria acute [Unknown]
  - Muscular weakness [Unknown]
  - Dependence on respirator [Unknown]

NARRATIVE: CASE EVENT DATE: 20221201
